FAERS Safety Report 9159111 (Version 1)
Quarter: 2013Q1

REPORT INFORMATION
  Report Type: Spontaneous
  Country: FR (occurrence: None)
  Receive Date: 20130213
  Receipt Date: 20130213
  Transmission Date: 20140127
  Serious: Yes (Hospitalization)
  Sender: FDA-Public Use
  Company Number: DSM-2013-00176

PATIENT
  Age: 65 Year
  Sex: Male

DRUGS (7)
  1. COOLMETEC [Suspect]
     Indication: HYPERTENSION
     Route: 048
  2. HEXAQUINE [Suspect]
     Dosage: (120 MG,3 IN 1 D)
     Route: 048
  3. SKENAN (MORPHINE SULFATE) (MORPHINE SULFATE) [Concomitant]
  4. DOLIPRANE (PARACETAMOL) (PARACETAMOL) [Concomitant]
  5. ATARAX (HYDROXYZINE) (TABLET) (HYDROXYZINE) [Concomitant]
  6. MACROGOL (MACROGOL) (MACROGOL) [Concomitant]
  7. THIOCOLCHICOSIDE (THIOCOLCHICOSIDE) (THIOCOLCHICOSIDE) [Concomitant]

REACTIONS (2)
  - DNA antibody positive [None]
  - Osteoarthritis [None]
